FAERS Safety Report 8522020-8 (Version None)
Quarter: 2012Q3

REPORT INFORMATION
  Report Type: 
  Country: None (occurrence: None)
  Receive Date: 20120719
  Receipt Date: 20120710
  Transmission Date: 20120928
  Serious: Yes (Hospitalization)
  Sender: FDA-Public Use
  Company Number: US-CELGENEUS-163-AB007-11102874

PATIENT
  Sex: Male
  Weight: 75 kg

DRUGS (9)
  1. ABRAXANE [Suspect]
     Dosage: 125 MILLIGRAM/SQ. METER
     Route: 041
     Dates: start: 20110927
  2. AUGMENTIN '500' [Concomitant]
     Dosage: 1500 MILLIGRAM
     Route: 048
     Dates: start: 20111020
  3. ASPIRIN [Concomitant]
     Indication: SUPPLEMENTATION THERAPY
     Dosage: 81 MILLIGRAM
     Route: 048
  4. ABRAXANE [Suspect]
     Dosage: 125 MILLIGRAM/SQ. METER
     Route: 041
     Dates: start: 20111004, end: 20111025
  5. GEMCITABINE [Suspect]
     Dosage: 1000 MILLIGRAM/SQ. METER
     Route: 041
     Dates: start: 20110927
  6. LISINOPRIL [Concomitant]
     Indication: HYPERTENSION
     Route: 048
  7. SIMVASTATIN [Concomitant]
     Dosage: 40 MILLIGRAM
     Route: 048
  8. GEMCITABINE [Suspect]
     Dosage: 1000 MILLIGRAM/SQ. METER
     Route: 041
     Dates: start: 20111004, end: 20111025
  9. GLYBERIDE/METFORMIN [Concomitant]
     Indication: DIABETES MELLITUS
     Dosage: 2.5/500MG
     Route: 048

REACTIONS (1)
  - SEPSIS [None]
